FAERS Safety Report 18472740 (Version 1)
Quarter: 2020Q4

REPORT INFORMATION
  Report Type: Spontaneous
  Country: US (occurrence: US)
  Receive Date: 20201104
  Receipt Date: 20201104
  Transmission Date: 20210114
  Serious: Yes (Hospitalization)
  Sender: FDA-Public Use
  Company Number: None

PATIENT
  Age: 26 Year
  Sex: Male

DRUGS (1)
  1. VANCOMYCIN (VANCOMYCIN HCL 1.25GM/VIAL INJ) [Suspect]
     Active Substance: VANCOMYCIN
     Indication: CELLULITIS
     Dates: start: 20191215, end: 20191215

REACTIONS (3)
  - Treatment failure [None]
  - Pruritus [None]
  - Urticaria [None]

NARRATIVE: CASE EVENT DATE: 20191215
